FAERS Safety Report 12761261 (Version 1)
Quarter: 2016Q3

REPORT INFORMATION
  Report Type: Spontaneous
  Country: US (occurrence: US)
  Receive Date: 20160920
  Receipt Date: 20160920
  Transmission Date: 20161109
  Serious: No
  Sender: FDA-Public Use
  Company Number: US-TEVA-653089USA

PATIENT
  Sex: Male
  Weight: 81.72 kg

DRUGS (2)
  1. CARVEDILOL. [Suspect]
     Active Substance: CARVEDILOL
     Indication: HYPERTENSION
     Route: 065
  2. WARFARIN [Suspect]
     Active Substance: WARFARIN
     Route: 065

REACTIONS (5)
  - Wrong technique in product usage process [Unknown]
  - Insomnia [Unknown]
  - Feeling abnormal [Unknown]
  - Restlessness [Unknown]
  - Irritability [Unknown]
